FAERS Safety Report 12256209 (Version 1)
Quarter: 2016Q2

REPORT INFORMATION
  Report Type: Spontaneous
  Country: US (occurrence: None)
  Receive Date: 20160411
  Receipt Date: 20160411
  Transmission Date: 20160815
  Serious: Yes (Hospitalization)
  Sender: FDA-Public Use
  Company Number: None

PATIENT
  Age: 68 Year
  Sex: Male
  Weight: 78.1 kg

DRUGS (20)
  1. VIT. D [Concomitant]
  2. OMEGA-3 ACIDS [Concomitant]
     Active Substance: OMEGA-3 FATTY ACIDS
  3. PRALUENT [Suspect]
     Active Substance: ALIROCUMAB
     Indication: DRUG INTOLERANCE
     Dosage: OCTOBER - FEBRUARY
     Route: 058
  4. CARVEDILOL. [Concomitant]
     Active Substance: CARVEDILOL
  5. PRALUENT [Suspect]
     Active Substance: ALIROCUMAB
     Indication: TYPE IIA HYPERLIPIDAEMIA
     Dosage: OCTOBER - FEBRUARY
     Route: 058
  6. FLONASE [Concomitant]
     Active Substance: FLUTICASONE PROPIONATE
  7. EPA [Concomitant]
  8. LORATADINE. [Concomitant]
     Active Substance: LORATADINE
  9. CENTRUM COMPLETE MULTIVITAMIN [Concomitant]
  10. METAMUCIL [Concomitant]
     Active Substance: PLANTAGO SEED
  11. MONTELUKAST [Concomitant]
     Active Substance: MONTELUKAST SODIUM
  12. AZATHIOPRINE. [Concomitant]
     Active Substance: AZATHIOPRINE
  13. UROSODIOL [Concomitant]
  14. DHA [Concomitant]
     Active Substance: DIETARY SUPPLEMENT
  15. COQ10 [Concomitant]
     Active Substance: UBIDECARENONE
  16. LANTUS [Concomitant]
     Active Substance: INSULIN GLARGINE
  17. TAMSULOSIN [Concomitant]
     Active Substance: TAMSULOSIN
  18. NOVOLOG [Concomitant]
     Active Substance: INSULIN ASPART
  19. KRILL OIL [Concomitant]
     Active Substance: DIETARY SUPPLEMENT
  20. ASPIRIN. [Concomitant]
     Active Substance: ASPIRIN

REACTIONS (12)
  - Mental status changes [None]
  - Anaemia [None]
  - Coagulopathy [None]
  - Oedema [None]
  - Gallbladder disorder [None]
  - Ascites [None]
  - Cholelithiasis [None]
  - Pleural effusion [None]
  - Liver injury [None]
  - Hypoglycaemia [None]
  - Cholestasis [None]
  - Jaundice [None]

NARRATIVE: CASE EVENT DATE: 20160211
